FAERS Safety Report 11863655 (Version 1)
Quarter: 2015Q4

REPORT INFORMATION
  Report Type: Spontaneous
  Country: CA (occurrence: None)
  Receive Date: 20151222
  Receipt Date: 20151222
  Transmission Date: 20160305
  Serious: Yes (Disabling)
  Sender: FDA-Public Use
  Company Number: None

PATIENT
  Age: 27 Year
  Sex: Female
  Weight: 63.5 kg

DRUGS (2)
  1. VIGAMOX [Suspect]
     Active Substance: MOXIFLOXACIN HYDROCHLORIDE
     Indication: CONJUNCTIVITIS
     Dosage: 1 DROP THREE TIMES DAILY INTO THE EYE
     Route: 047
     Dates: start: 20151119, end: 20151123
  2. DAILY VITAMIN FOR WOMEN [Concomitant]

REACTIONS (7)
  - Ocular hyperaemia [None]
  - Skin abrasion [None]
  - Pruritus [None]
  - Visual impairment [None]
  - Eye swelling [None]
  - Lacrimation increased [None]
  - Hypersensitivity [None]

NARRATIVE: CASE EVENT DATE: 20151119
